FAERS Safety Report 4620024-9 (Version None)
Quarter: 2005Q1

REPORT INFORMATION
  Report Type: 
  Country: None (occurrence: None)
  Receive Date: 20050321
  Receipt Date: 20050321
  Transmission Date: 20050727
  Serious: Yes (Hospitalization, Other)
  Sender: FDA-Public Use
  Company Number: None

PATIENT
  Sex: Female
  Weight: 59.42 kg

DRUGS (3)
  1. CAPECITABINE [Suspect]
     Dosage: 600 MG/M2 Q 12 HOURS ORALLY DAILY (7 DAYS/WEEK)
     Route: 048
     Dates: start: 20050110, end: 20050124
  2. RADIATION [Suspect]
  3. IRINOTECAN HCL [Suspect]
     Dosage: 50 MG/M2 IV OVER 1 HOUR ON DAYS 1, 8, 15 AND 22
     Route: 042
     Dates: start: 20050110, end: 20050117

REACTIONS (6)
  - DEHYDRATION [None]
  - DIARRHOEA [None]
  - DYSPNOEA [None]
  - ENTERITIS [None]
  - HYPOTENSION [None]
  - ORAL INTAKE REDUCED [None]
